FAERS Safety Report 7644489-3 (Version None)
Quarter: 2011Q3

REPORT INFORMATION
  Report Type: 
  Country: None (occurrence: None)
  Receive Date: 20110729
  Receipt Date: 20110722
  Transmission Date: 20111222
  Serious: Yes (Death, Hospitalization)
  Sender: FDA-Public Use
  Company Number: IN-ROCHE-792459

PATIENT
  Sex: Female
  Weight: 55 kg

DRUGS (6)
  1. DOMSTAL [Concomitant]
     Dates: start: 20100114, end: 20100128
  2. ACECLOFENAC [Concomitant]
     Dates: start: 20100128, end: 20100207
  3. ZOLEDRONIC ACID [Concomitant]
     Dates: start: 20100208, end: 20100208
  4. PANTOPRAZOLE [Concomitant]
     Dates: start: 20100114, end: 20100128
  5. CAPECITABINE [Suspect]
     Indication: BREAST CANCER
     Dosage: CYCLICAL. LAST DOSE PRIOR TO SAE 27 JANUARY 2010.D1 TO D14 EVERY 3 WEEKS
     Route: 048
     Dates: start: 20100113, end: 20100127
  6. BENADON [Concomitant]
     Dates: start: 20100114, end: 20100211

REACTIONS (4)
  - CARDIAC FAILURE [None]
  - DISEASE PROGRESSION [None]
  - ANAEMIA [None]
  - RESPIRATORY DISTRESS [None]
